FAERS Safety Report 8387264-7 (Version None)
Quarter: 2012Q2

REPORT INFORMATION
  Report Type: 
  Country: None (occurrence: None)
  Receive Date: 20120525
  Receipt Date: 20120514
  Transmission Date: 20120825
  Serious: Yes (Other)
  Sender: FDA-Public Use
  Company Number: US-ROCHE-1069903

PATIENT

DRUGS (2)
  1. AVASTIN [Suspect]
     Indication: HEPATIC NEOPLASM MALIGNANT
     Route: 042
  2. TARCEVA [Suspect]
     Indication: HEPATIC NEOPLASM MALIGNANT
     Route: 048

REACTIONS (10)
  - DIARRHOEA [None]
  - INFECTION [None]
  - HYPERTENSION [None]
  - ALANINE AMINOTRANSFERASE ABNORMAL [None]
  - RASH [None]
  - FATIGUE [None]
  - HAEMORRHAGE [None]
  - ASPARTATE AMINOTRANSFERASE ABNORMAL [None]
  - HYPERKALAEMIA [None]
  - HYPONATRAEMIA [None]
